FAERS Safety Report 22136310 (Version 2)
Quarter: 2023Q2

REPORT INFORMATION
  Report Type: Spontaneous
  Country: FR (occurrence: FR)
  Receive Date: 20230324
  Receipt Date: 20230404
  Transmission Date: 20230721
  Serious: Yes (Other)
  Sender: FDA-Public Use
  Company Number: FR-MYLANLABS-2023M1030139

PATIENT
  Age: 54 Year
  Sex: Female

DRUGS (5)
  1. DYMISTA [Suspect]
     Active Substance: AZELASTINE HYDROCHLORIDE\FLUTICASONE PROPIONATE
     Indication: Hypersensitivity
     Dosage: UNK (137 MCG/50 MCG/DOSE)
     Route: 045
     Dates: start: 20230311, end: 20230313
  2. DYMISTA [Suspect]
     Active Substance: AZELASTINE HYDROCHLORIDE\FLUTICASONE PROPIONATE
     Dosage: 137/50 MICROGRAM, BID (MORNING AND EVENING )
     Route: 065
     Dates: start: 20230312
  3. DYMISTA [Suspect]
     Active Substance: AZELASTINE HYDROCHLORIDE\FLUTICASONE PROPIONATE
     Dosage: 137/50 MICROGRAM, QD (MORNING)
     Route: 065
     Dates: start: 20230313
  4. DESLORATADINE [Concomitant]
     Active Substance: DESLORATADINE
     Indication: Hypersensitivity
     Dosage: UNK
     Route: 048
  5. BETAMETHASONE [Concomitant]
     Active Substance: BETAMETHASONE
     Indication: Hypersensitivity
     Dosage: UNK
     Route: 061

REACTIONS (6)
  - Eye haemorrhage [Unknown]
  - Eye pain [Recovering/Resolving]
  - Swelling face [Unknown]
  - Eye swelling [Recovering/Resolving]
  - Ocular hyperaemia [Recovering/Resolving]
  - Intraocular pressure increased [Recovered/Resolved]

NARRATIVE: CASE EVENT DATE: 20230312
